FAERS Safety Report 13593241 (Version 1)
Quarter: 2017Q2

REPORT INFORMATION
  Report Type: Spontaneous
  Country: US (occurrence: US)
  Receive Date: 20170530
  Receipt Date: 20170530
  Transmission Date: 20170830
  Serious: Yes (Hospitalization)
  Sender: FDA-Public Use
  Company Number: US-ROCHE-1936209

PATIENT
  Age: 48 Year
  Sex: Male
  Weight: 90 kg

DRUGS (2)
  1. ZELBORAF [Suspect]
     Active Substance: VEMURAFENIB
     Indication: MALIGNANT MELANOMA
     Dosage: EVERY 12 HOURS
     Route: 048
     Dates: start: 20170214, end: 20170315
  2. COTELLIC [Suspect]
     Active Substance: COBIMETINIB
     Indication: MALIGNANT MELANOMA
     Dosage: 21 DAYS ON AND 7 DAYS OFF
     Route: 048
     Dates: start: 20170214, end: 20170307

REACTIONS (14)
  - Transaminases increased [Unknown]
  - Rash [Unknown]
  - Rhabdomyolysis [Unknown]
  - Renal failure [Unknown]
  - Acute kidney injury [Unknown]
  - Fatigue [Unknown]
  - Skin infection [Unknown]
  - Aspartate aminotransferase abnormal [Unknown]
  - Blood creatine phosphokinase abnormal [Unknown]
  - Hypotension [Unknown]
  - Alanine aminotransferase abnormal [Unknown]
  - Asthenia [Unknown]
  - Metabolic acidosis [Unknown]
  - Pyrexia [Unknown]

NARRATIVE: CASE EVENT DATE: 20170316
